FAERS Safety Report 8461340-2 (Version None)
Quarter: 2012Q2

REPORT INFORMATION
  Report Type: 
  Country: None (occurrence: None)
  Receive Date: 20120625
  Receipt Date: 20120613
  Transmission Date: 20120825
  Serious: Yes (Other)
  Sender: FDA-Public Use
  Company Number: FR-JNJFOC-20120608498

PATIENT
  Sex: Male

DRUGS (5)
  1. OXAZEPAM [Interacting]
     Indication: PRODUCT USED FOR UNKNOWN INDICATION
     Route: 048
  2. HALDOL [Suspect]
     Indication: PRODUCT USED FOR UNKNOWN INDICATION
     Route: 048
     Dates: end: 20120530
  3. ANTIVITAMIN K DRUG NOS [Concomitant]
     Route: 065
  4. PLATELET AGGREGATION INHIBITORS [Concomitant]
  5. OXAZEPAM [Interacting]
     Route: 048

REACTIONS (2)
  - DRUG INTERACTION [None]
  - FALL [None]
